FAERS Safety Report 8609528-1 (Version None)
Quarter: 2012Q3

REPORT INFORMATION
  Report Type: 
  Country: None (occurrence: None)
  Receive Date: 20120821
  Receipt Date: 20120809
  Transmission Date: 20120928
  Serious: Yes (Other)
  Sender: FDA-Public Use
  Company Number: US-PFIZER INC-2012194621

PATIENT
  Age: 45 Year
  Sex: Male
  Weight: 116 kg

DRUGS (5)
  1. PARACETAMOL [Concomitant]
     Indication: MIGRAINE
     Dosage: UNK
     Dates: start: 20000101
  2. HERBAL PREPARATION [Concomitant]
     Indication: SUPPLEMENTATION THERAPY
     Dosage: UNK
     Dates: start: 20020101
  3. OMEGA 3-6-9 [Concomitant]
     Indication: SUPPLEMENTATION THERAPY
     Dosage: UNK
     Dates: start: 20020101
  4. SUNITINIB MALATE [Suspect]
     Indication: METASTATIC RENAL CELL CARCINOMA
     Dosage: 50 MG, UNK
     Route: 048
     Dates: start: 20060523
  5. CHONDROITIN/GLUCOSAMINE/METHYLSULFONYLMETHANE [Concomitant]
     Indication: SUPPLEMENTATION THERAPY
     Dosage: UNK
     Dates: start: 20020101

REACTIONS (2)
  - NEOPLASM MALIGNANT [None]
  - NASAL NEOPLASM [None]
